FAERS Safety Report 4445109-1 (Version None)
Quarter: 2004Q3

REPORT INFORMATION
  Report Type: 
  Country: None (occurrence: None)
  Receive Date: 20040907
  Receipt Date: 20040831
  Transmission Date: 20050211
  Serious: Yes (Hospitalization)
  Sender: FDA-Public Use
  Company Number: DE-2004-030502

PATIENT
  Age: 49 Year
  Sex: Female
  Weight: 57 kg

DRUGS (4)
  1. YASMIN [Suspect]
     Indication: ORAL CONTRACEPTION
     Dosage: 1 TAB(S), 21D/28D, ORAL
     Route: 048
     Dates: start: 20010601, end: 20040301
  2. VOLTAREN RESINAT ^GEIGY^ (DICLOFENAC RESINATE) [Concomitant]
  3. SUMMAVIT (VITAMINS NOS) [Concomitant]
  4. ACTONEL [Concomitant]

REACTIONS (10)
  - ATRIAL TACHYCARDIA [None]
  - CAUDA EQUINA SYNDROME [None]
  - CONUS MEDULLARIS SYNDROME [None]
  - DIZZINESS [None]
  - HYPERCHOLESTEROLAEMIA [None]
  - SINUS TACHYCARDIA [None]
  - SPINAL CORD INFARCTION [None]
  - SUPRAVENTRICULAR EXTRASYSTOLES [None]
  - SUPRAVENTRICULAR TACHYCARDIA [None]
  - VENTRICULAR EXTRASYSTOLES [None]
